FAERS Safety Report 10524423 (Version 4)
Quarter: 2015Q1

REPORT INFORMATION
  Report Type: Spontaneous
  Country: US (occurrence: US)
  Receive Date: 20141017
  Receipt Date: 20150127
  Transmission Date: 20150720
  Serious: Yes (Other)
  Sender: FDA-Public Use
  Company Number: US-INCYTE CORPORATION-2014IN003045

PATIENT
  Age: 57 Year
  Sex: Male

DRUGS (12)
  1. ASPIRIN. [Concomitant]
     Active Substance: ASPIRIN
     Dosage: NOT SPECIFIED
     Dates: start: 20120726
  2. INFLUENZA VACCINE [Concomitant]
     Active Substance: INFLUENZA VIRUS VACCINE
     Dosage: NOT SPECIFIED
     Route: 030
     Dates: start: 20141106, end: 20141106
  3. JAKAFI [Suspect]
     Active Substance: RUXOLITINIB
     Dosage: 40 MG, QD
     Route: 048
     Dates: start: 20150113
  4. HYDROXYUREA. [Concomitant]
     Active Substance: HYDROXYUREA
     Dosage: 1 G, QD
     Dates: start: 20141217
  5. JAKAFI [Suspect]
     Active Substance: RUXOLITINIB
     Dosage: 20 MG, QD
     Route: 048
     Dates: start: 20141021, end: 2014
  6. JAKAFI [Suspect]
     Active Substance: RUXOLITINIB
     Dosage: 40 MG, QD
     Route: 048
     Dates: start: 2014, end: 2014
  7. JAKAFI [Suspect]
     Active Substance: RUXOLITINIB
     Dosage: 30 MG, QD
     Route: 048
     Dates: start: 20141104, end: 201411
  8. ALPHAGAN P [Concomitant]
     Active Substance: BRIMONIDINE TARTRATE
     Dosage: 1 % DROPS, BID
     Route: 047
     Dates: start: 20141106
  9. JAKAFI [Suspect]
     Active Substance: RUXOLITINIB
     Indication: MYELOFIBROSIS
     Dosage: 20 MG, QD
     Route: 048
     Dates: start: 20140305, end: 2014
  10. HYDROXYUREA. [Concomitant]
     Active Substance: HYDROXYUREA
     Dosage: NOT SPECIFIED
  11. JAKAFI [Suspect]
     Active Substance: RUXOLITINIB
     Dosage: 20 MG, QD
     Route: 048
     Dates: start: 201411, end: 201412
  12. ADDERALL [Concomitant]
     Active Substance: AMPHETAMINE ASPARTATE\AMPHETAMINE SULFATE\DEXTROAMPHETAMINE SACCHARATE\DEXTROAMPHETAMINE SULFATE
     Dosage: 20 MG, BID
     Dates: start: 20120726

REACTIONS (10)
  - Optic neuropathy [Recovering/Resolving]
  - Dyspnoea exertional [Unknown]
  - Anaemia [Not Recovered/Not Resolved]
  - Fatigue [Unknown]
  - Haematocrit decreased [Unknown]
  - Visual acuity reduced [Recovering/Resolving]
  - Platelet count decreased [Unknown]
  - Asthenia [Unknown]
  - White blood cell count increased [Unknown]
  - Splenomegaly [Unknown]

NARRATIVE: CASE EVENT DATE: 20140925
